FAERS Safety Report 25738411 (Version 3)
Quarter: 2025Q4

REPORT INFORMATION
  Report Type: Other
  Country: EU (occurrence: EU)
  Receive Date: 20250829
  Receipt Date: 20251029
  Transmission Date: 20260118
  Serious: Yes (Life-Threatening, Hospitalization, Other)
  Sender: STRIDES
  Company Number: None

PATIENT
  Age: 24 Year
  Sex: Male

DRUGS (11)
  1. IBUPROFEN [Suspect]
     Active Substance: IBUPROFEN
     Indication: Respiratory disorder
     Dosage: 0 MILLIGRAM
     Route: 065
     Dates: start: 202501
  2. IBUPROFEN [Suspect]
     Active Substance: IBUPROFEN
     Indication: Respiratory tract infection viral
     Dosage: IN JANUARY 2025, AFTER TAKING IBUPROFEN AND PARACETAMOL
     Route: 065
     Dates: start: 202501, end: 202501
  3. IBUPROFEN [Suspect]
     Active Substance: IBUPROFEN
     Indication: Respiratory symptom
  4. IBUPROFEN [Suspect]
     Active Substance: IBUPROFEN
     Indication: Viral infection
  5. ACETAMINOPHEN\IBUPROFEN [Suspect]
     Active Substance: ACETAMINOPHEN\IBUPROFEN
     Indication: Respiratory disorder
     Dosage: 0 MILLIGRAM
     Route: 065
  6. ACETAMINOPHEN [Suspect]
     Active Substance: ACETAMINOPHEN
     Indication: Respiratory tract infection viral
     Dosage: IN JAN 2025, AFTER TAKING IBUPROFEN AND PARACETAMOL
     Route: 065
     Dates: start: 202501
  7. ACETAMINOPHEN [Suspect]
     Active Substance: ACETAMINOPHEN
     Indication: Respiratory symptom
  8. ACETAMINOPHEN [Suspect]
     Active Substance: ACETAMINOPHEN
     Indication: Viral infection
  9. ACETAMINOPHEN [Suspect]
     Active Substance: ACETAMINOPHEN
     Indication: Respiratory disorder
  10. METHYLPREDNISOLONE [Concomitant]
     Active Substance: METHYLPREDNISOLONE
     Indication: Product used for unknown indication
     Dosage: UNK
     Route: 065
  11. LORATADINE [Concomitant]
     Active Substance: LORATADINE
     Indication: Product used for unknown indication
     Dosage: UNK
     Route: 065

REACTIONS (10)
  - Circumoral oedema [Recovered/Resolved]
  - Periorbital oedema [Recovered/Resolved]
  - Angioedema [Recovering/Resolving]
  - Dyspnoea [Recovered/Resolved]
  - Anaphylactic reaction [Recovered/Resolved]
  - Drug hypersensitivity [Unknown]
  - Angioedema [Recovered/Resolved]
  - Rash maculo-papular [Recovered/Resolved]
  - Erythema [Recovered/Resolved]
  - Hypersensitivity [Recovered/Resolved]

NARRATIVE: CASE EVENT DATE: 20250101
